FAERS Safety Report 25960651 (Version 1)
Quarter: 2025Q4

REPORT INFORMATION
  Report Type: Report from Study
  Country: EU (occurrence: EU)
  Receive Date: 20251027
  Receipt Date: 20251027
  Transmission Date: 20260118
  Serious: Yes (Other)
  Sender: BOEHRINGER INGELHEIM
  Company Number: None

PATIENT
  Age: 75 Year
  Sex: Female

DRUGS (6)
  1. NINTEDANIB [Suspect]
     Active Substance: NINTEDANIB
     Indication: Pulmonary fibrosis
     Route: 048
     Dates: start: 20230809, end: 20240714
  2. ATROVENT [Suspect]
     Active Substance: IPRATROPIUM BROMIDE
     Indication: Pulmonary fibrosis
     Route: 055
     Dates: start: 202211
  3. PREDNISONE [Concomitant]
     Active Substance: PREDNISONE
     Indication: Pulmonary fibrosis
     Route: 048
     Dates: start: 20211201
  4. ENALAPRIL MALEATE\HYDROCHLOROTHIAZIDE [Concomitant]
     Active Substance: ENALAPRIL MALEATE\HYDROCHLOROTHIAZIDE
     Indication: Essential hypertension
     Route: 048
     Dates: start: 20121023
  5. FOSTER 200 MICROGRAMOS /6 MICROGRAMOS/PULSACION SOLUCION PARA INHALACI [Concomitant]
     Indication: Pulmonary fibrosis
     Route: 055
     Dates: start: 20130227
  6. MST CONTINUS 15 mg COMPRIMIDOS DE LIBERACION PROLONGADA [Concomitant]
     Indication: Product used for unknown indication
     Route: 048
     Dates: start: 20211201

REACTIONS (2)
  - Diarrhoea [Recovered/Resolved]
  - Rectal haemorrhage [Recovered/Resolved]

NARRATIVE: CASE EVENT DATE: 20240701
